FAERS Safety Report 4999797-1 (Version None)
Quarter: 2006Q2

REPORT INFORMATION
  Report Type: 
  Country: None (occurrence: None)
  Receive Date: 20060509
  Receipt Date: 20060509
  Transmission Date: 20061013
  Serious: No
  Sender: FDA-Public Use
  Company Number: None

PATIENT
  Age: 44 Year
  Sex: Female
  Weight: 61.2356 kg

DRUGS (1)
  1. ORTHO EVRA [Suspect]
     Indication: MENSTRUATION IRREGULAR
     Dosage: ONE PER WEEK   CONTINOUSLY    TRANSDERMAL
     Route: 062
     Dates: start: 20020607, end: 20030607

REACTIONS (2)
  - MEMORY IMPAIRMENT [None]
  - TRANSIENT ISCHAEMIC ATTACK [None]
